FAERS Safety Report 7676609-9 (Version None)
Quarter: 2011Q3

REPORT INFORMATION
  Report Type: 
  Country: None (occurrence: None)
  Receive Date: 20110811
  Receipt Date: 20110802
  Transmission Date: 20111222
  Serious: Yes (Other)
  Sender: FDA-Public Use
  Company Number: US-B.I. PHARMACEUTICALS,INC./RIDGEFIELD-2011-BP-19077PF

PATIENT
  Sex: Female

DRUGS (2)
  1. LIPITOR [Suspect]
  2. SPIRIVA [Suspect]
     Route: 065

REACTIONS (1)
  - THYROID DISORDER [None]
